FAERS Safety Report 21434828 (Version 1)
Quarter: 2022Q4

REPORT INFORMATION
  Report Type: Spontaneous
  Country: US (occurrence: US)
  Receive Date: 20221010
  Receipt Date: 20221010
  Transmission Date: 20230113
  Serious: No
  Sender: FDA-Public Use
  Company Number: US-BAYER-2022A137694

PATIENT
  Sex: Female

DRUGS (2)
  1. ASTEPRO [Suspect]
     Active Substance: AZELASTINE HYDROCHLORIDE
  2. CLARITIN [Concomitant]
     Active Substance: LORATADINE
     Route: 048

REACTIONS (1)
  - Drug effect less than expected [Unknown]
